FAERS Safety Report 14529006 (Version 2)
Quarter: 2018Q1

REPORT INFORMATION
  Report Type: Spontaneous
  Country: US (occurrence: US)
  Receive Date: 20180214
  Receipt Date: 20180312
  Transmission Date: 20180509
  Serious: No
  Sender: FDA-Public Use
  Company Number: US-PFIZER INC-2018062140

PATIENT
  Age: 53 Year
  Sex: Female
  Weight: 67 kg

DRUGS (1)
  1. AMLODIPINE BESILATE [Suspect]
     Active Substance: AMLODIPINE BESYLATE
     Dosage: 10 MG, DAILY (IN THE EVENING)
     Route: 048
     Dates: start: 201705

REACTIONS (1)
  - Drug effect incomplete [Unknown]
